FAERS Safety Report 4870372-2 (Version None)
Quarter: 2006Q1

REPORT INFORMATION
  Report Type: 
  Country: None (occurrence: None)
  Receive Date: 20060103
  Receipt Date: 20051216
  Transmission Date: 20060701
  Serious: Yes (Hospitalization)
  Sender: FDA-Public Use
  Company Number: 2005UW18938

PATIENT
  Age: 29609 Day
  Sex: Male
  Weight: 74 kg

DRUGS (7)
  1. IRESSA [Suspect]
     Indication: NON-SMALL CELL LUNG CANCER
     Route: 048
     Dates: start: 20050523, end: 20050619
  2. METOPROLOL [Concomitant]
     Indication: HYPERTENSION
     Route: 048
     Dates: start: 19980401
  3. METOPROLOL [Concomitant]
     Indication: ANGINA PECTORIS
     Route: 048
     Dates: start: 19980401
  4. AMLODIPINE BESYLATE [Concomitant]
     Indication: HYPERTENSION
     Route: 048
     Dates: start: 19980401
  5. ASPIRIN [Concomitant]
     Indication: PROPHYLAXIS
     Route: 048
     Dates: start: 20050401
  6. NITROGLYCERINE TRANSDERMAL [Concomitant]
     Indication: ANGINA PECTORIS
     Route: 062
     Dates: start: 19980401
  7. NITROGLYCERINE AEROSOL [Concomitant]
     Indication: ANGINA PECTORIS
     Route: 048
     Dates: start: 19980401

REACTIONS (2)
  - PNEUMOTHORAX [None]
  - POST PROCEDURAL COMPLICATION [None]
